FAERS Safety Report 15403341 (Version 3)
Quarter: 2022Q2

REPORT INFORMATION
  Report Type: Report from Study
  Country: FR (occurrence: FR)
  Receive Date: 20180919
  Receipt Date: 20220630
  Transmission Date: 20220720
  Serious: Yes (Other)
  Sender: FDA-Public Use
  Company Number: FR-PFIZER INC-2018367499

PATIENT
  Weight: 32 kg

DRUGS (13)
  1. GEMTUZUMAB OZOGAMICIN [Suspect]
     Active Substance: GEMTUZUMAB OZOGAMICIN
     Indication: Acute myeloid leukaemia
     Dosage: 3 MG/M2, 2X/DAY
     Route: 042
     Dates: start: 20180803, end: 20180806
  2. CYTARABINE [Suspect]
     Active Substance: CYTARABINE
     Indication: Acute myeloid leukaemia
     Dosage: 120 MG/ML, 3X/DAY
     Route: 042
     Dates: start: 20180731, end: 20180809
  3. MITOXANTRONE [Suspect]
     Active Substance: MITOXANTRONE HYDROCHLORIDE
     Indication: Acute myeloid leukaemia
     Dosage: 14 MG, 2X/DAY
     Route: 042
     Dates: start: 20180731, end: 20180803
  4. AMBISOME [Concomitant]
     Active Substance: AMPHOTERICIN B
     Dosage: 90 MG, 2X/DAY
     Dates: start: 20180831
  5. PIPERACILLIN SODIUM\TAZOBACTAM SODIUM [Concomitant]
     Active Substance: PIPERACILLIN SODIUM\TAZOBACTAM SODIUM
     Dosage: 2.5 G, 2X/DAY
     Dates: start: 20180831
  6. VANCOMYCIN [Concomitant]
     Active Substance: VANCOMYCIN
     Dosage: 640 MG, 2X/DAY
  7. ONDANSETRON [Concomitant]
     Active Substance: ONDANSETRON
     Dosage: 6 MG, 2X/DAY
     Dates: start: 20180831
  8. ALIZAPRIDE HYDROCHLORIDE [Concomitant]
     Active Substance: ALIZAPRIDE HYDROCHLORIDE
     Dosage: 30 MG, 2X/DAY
  9. HYDROXYZINE [Concomitant]
     Active Substance: HYDROXYZINE HYDROCHLORIDE
     Dosage: 30 MG, 2X/DAY
     Dates: start: 20180831, end: 20180902
  10. BACTRIM [Concomitant]
     Active Substance: SULFAMETHOXAZOLE\TRIMETHOPRIM
     Dosage: 800 MG, 2X/DAY
     Dates: start: 20180831, end: 20180903
  11. POLARAMINE [Concomitant]
     Active Substance: DEXCHLORPHENIRAMINE MALEATE
     Dosage: 5 MG, 2X/DAY
     Dates: start: 20180831, end: 20180903
  12. PERFALGAN [Concomitant]
     Active Substance: ACETAMINOPHEN
     Dosage: 500 MG, 2X/DAY
     Dates: start: 20180831, end: 20180903
  13. MELATONIN [Concomitant]
     Active Substance: MELATONIN
     Dosage: 4 MG, 2X/DAY
     Dates: start: 20180901

REACTIONS (2)
  - Erythema [Not Recovered/Not Resolved]
  - Pruritus [Not Recovered/Not Resolved]

NARRATIVE: CASE EVENT DATE: 20180831
